FAERS Safety Report 5103362-5 (Version None)
Quarter: 2006Q3

REPORT INFORMATION
  Report Type: 
  Country: None (occurrence: None)
  Receive Date: 20060908
  Receipt Date: 20060829
  Transmission Date: 20061208
  Serious: Yes (Death, Other)
  Sender: FDA-Public Use
  Company Number: TW-2006-023063

PATIENT

DRUGS (1)
  1. ULTRAVIST 300 [Suspect]
     Indication: UROGRAM
     Dosage: INTRAVENOUS
     Route: 042

REACTIONS (3)
  - HAEMATEMESIS [None]
  - POST PROCEDURAL COMPLICATION [None]
  - RESUSCITATION [None]
